FAERS Safety Report 4694593-7 (Version None)
Quarter: 2005Q2

REPORT INFORMATION
  Report Type: 
  Country: None (occurrence: None)
  Receive Date: 20050620
  Receipt Date: 20050609
  Transmission Date: 20051028
  Serious: Yes (Hospitalization)
  Sender: FDA-Public Use
  Company Number: FR-BRISTOL-MYERS SQUIBB COMPANY-13000245

PATIENT
  Age: 38 Year
  Sex: Male

DRUGS (8)
  1. ABILIFY [Suspect]
     Indication: SCHIZOPHRENIA
     Dosage: DOSAGE INCREASED TO 15 MG ON 06-APR-05 THEN DECREASED BACK TO 10 MG ON 13-APR-05.
     Route: 048
     Dates: start: 20050323, end: 20050419
  2. SULFARLEM [Concomitant]
     Indication: PARKINSON'S DISEASE
     Dates: start: 20050523
  3. LEPTICUR [Concomitant]
     Indication: PARKINSON'S DISEASE
  4. IMOVANE [Concomitant]
     Indication: SLEEP DISORDER
     Dates: start: 20050323
  5. PROZAC [Concomitant]
     Indication: SCHIZOPHRENIA
  6. TERCIAN [Concomitant]
  7. CLONAZEPAM [Concomitant]
  8. RISPERDAL [Concomitant]
     Indication: SCHIZOPHRENIA

REACTIONS (5)
  - DRUG INEFFECTIVE [None]
  - DYSKINESIA [None]
  - HALLUCINATION [None]
  - LUNG DISORDER [None]
  - POLYDIPSIA PSYCHOGENIC [None]
